FAERS Safety Report 6876360-9 (Version None)
Quarter: 2010Q3

REPORT INFORMATION
  Report Type: 
  Country: None (occurrence: None)
  Receive Date: 20100727
  Receipt Date: 20100723
  Transmission Date: 20110219
  Serious: Yes (Hospitalization)
  Sender: FDA-Public Use
  Company Number: JP-EISAI INC.-E2020-06910-SPO-JP

PATIENT
  Age: 80 Year
  Sex: Female

DRUGS (6)
  1. ARICEPT [Suspect]
     Indication: DEMENTIA ALZHEIMER'S TYPE
     Route: 048
     Dates: start: 20090515, end: 20090604
  2. ARICEPT [Suspect]
     Route: 048
     Dates: start: 20090605, end: 20100520
  3. ARICEPT [Suspect]
     Route: 048
     Dates: start: 20100521, end: 20100617
  4. PRAVASTATIN [Concomitant]
     Route: 048
  5. BONALOG [Concomitant]
     Indication: OSTEOPOROSIS
     Route: 048
  6. NIZORAL [Concomitant]
     Dosage: UNKNOWN

REACTIONS (1)
  - GASTRIC ULCER [None]
